FAERS Safety Report 14350200 (Version 1)
Quarter: 2018Q1

REPORT INFORMATION
  Report Type: Spontaneous
  Country: US (occurrence: US)
  Receive Date: 20180104
  Receipt Date: 20180104
  Transmission Date: 20180509
  Serious: Yes (Hospitalization)
  Sender: FDA-Public Use
  Company Number: US-JNJFOC-20171219996

PATIENT
  Sex: Female

DRUGS (3)
  1. PATRIOT RISPERDONE [Suspect]
     Active Substance: RISPERIDONE
     Indication: PRODUCT USED FOR UNKNOWN INDICATION
     Route: 048
  2. PATRIOT RISPERDONE [Suspect]
     Active Substance: RISPERIDONE
     Indication: PRODUCT USED FOR UNKNOWN INDICATION
     Dosage: OFF RISPERIDONE FOR 2 YEARS
     Route: 048
  3. PATRIOT RISPERDONE [Suspect]
     Active Substance: RISPERIDONE
     Indication: PRODUCT USED FOR UNKNOWN INDICATION
     Dosage: PATIENT WAS OFF RISPERIDONE FOR 9 MONTHS
     Route: 048

REACTIONS (10)
  - Mental impairment [Unknown]
  - Emotional distress [Unknown]
  - Anxiety [Unknown]
  - Sleep disorder [Unknown]
  - Weight increased [Recovering/Resolving]
  - Hallucination [Recovering/Resolving]
  - Fear [Unknown]
  - Hyperprolactinaemia [Recovering/Resolving]
  - Nervousness [Unknown]
  - Violence-related symptom [Unknown]
